FAERS Safety Report 23632061 (Version 1)
Quarter: 2024Q1

REPORT INFORMATION
  Report Type: Spontaneous
  Country: US (occurrence: US)
  Receive Date: 20240314
  Receipt Date: 20240314
  Transmission Date: 20240410
  Serious: No
  Sender: FDA-Public Use
  Company Number: US-MYLANLABS-2024M1019131

PATIENT
  Sex: Female

DRUGS (1)
  1. WIXELA INHUB [Suspect]
     Active Substance: FLUTICASONE PROPIONATE\SALMETEROL XINAFOATE
     Indication: Pneumonia
     Dosage: UNK, BID
     Route: 065
     Dates: start: 20240212

REACTIONS (4)
  - Device delivery system issue [Unknown]
  - Device issue [Unknown]
  - Product quality issue [Unknown]
  - Off label use [Unknown]
